FAERS Safety Report 9658985 (Version 2)
Quarter: 2013Q4

REPORT INFORMATION
  Report Type: Report from Study
  Country: CO (occurrence: CO)
  Receive Date: 20131031
  Receipt Date: 20131031
  Transmission Date: 20140711
  Serious: Yes (Other)
  Sender: FDA-Public Use
  Company Number: CO-009507513-1104USA02824

PATIENT
  Age: 58 Year
  Sex: Female
  Weight: 70 kg

DRUGS (3)
  1. EZETIMIBE (+) SIMVASTATIN [Suspect]
     Indication: ACUTE CORONARY SYNDROME
     Dosage: 1 DF, QD
     Route: 048
     Dates: start: 20070911
  2. ZOLPIDEM TARTRATE [Concomitant]
     Dosage: TOTAL DAILY DOSE 10MG
     Route: 048
     Dates: start: 20100201
  3. ASPIRIN [Concomitant]
     Dosage: TOTAL DAILY DOSE 100MG
     Route: 048
     Dates: start: 20070901

REACTIONS (1)
  - Anal cancer [Recovered/Resolved]
